FAERS Safety Report 9619790 (Version 2)
Quarter: 2013Q4

REPORT INFORMATION
  Report Type: Spontaneous
  Country: DE (occurrence: DE)
  Receive Date: 20131014
  Receipt Date: 20131030
  Transmission Date: 20140711
  Serious: Yes (Death, Other)
  Sender: FDA-Public Use
  Company Number: DE-TAKEDA-2013TUS001456

PATIENT
  Age: 79 Year
  Sex: Female

DRUGS (3)
  1. ADENURIC [Suspect]
     Dosage: 80 MG, QD
     Route: 048
     Dates: start: 201310, end: 201310
  2. CANDESARTAN [Concomitant]
     Indication: HYPERTENSION
  3. BETA BLOCKING AGENTS [Concomitant]

REACTIONS (1)
  - Cardiac arrest [Fatal]
